FAERS Safety Report 15059402 (Version 1)
Quarter: 2018Q2

REPORT INFORMATION
  Report Type: Spontaneous
  Country: GB (occurrence: GB)
  Receive Date: 20180625
  Receipt Date: 20180625
  Transmission Date: 20180711
  Serious: Yes (Other)
  Sender: FDA-Public Use
  Company Number: GB-JNJFOC-20180628697

PATIENT
  Age: 92 Year
  Sex: Female
  Weight: 48 kg

DRUGS (6)
  1. FERROUS SULFATE. [Concomitant]
     Active Substance: FERROUS SULFATE
     Route: 065
  2. CALCIUM CARBONATE W/COLECALCIFEROL [Concomitant]
     Active Substance: CALCIUM CARBONATE\CHOLECALCIFEROL
     Route: 065
  3. TEMAZEPAM. [Concomitant]
     Active Substance: TEMAZEPAM
     Route: 065
  4. BISOPROLOL FUMARATE. [Concomitant]
     Active Substance: BISOPROLOL FUMARATE
     Route: 065
  5. XARELTO [Suspect]
     Active Substance: RIVAROXABAN
     Indication: ATRIAL FIBRILLATION
     Route: 048
     Dates: start: 20180517, end: 20180604
  6. RANITIDINA GI [Concomitant]
     Route: 065

REACTIONS (2)
  - Oedema [Unknown]
  - Malaise [Unknown]

NARRATIVE: CASE EVENT DATE: 20180519
